FAERS Safety Report 23397427 (Version 1)
Quarter: 2024Q1

REPORT INFORMATION
  Report Type: Spontaneous
  Country: US (occurrence: US)
  Receive Date: 20240112
  Receipt Date: 20240112
  Transmission Date: 20240410
  Serious: No
  Sender: FDA-Public Use
  Company Number: US-OPELLA-2024OHG000904

PATIENT

DRUGS (1)
  1. ICY HOT KIDS PAIN RELIEF [Suspect]
     Active Substance: MENTHOL
     Indication: Product used for unknown indication

REACTIONS (3)
  - Drug ineffective [Unknown]
  - Product use issue [Unknown]
  - No adverse event [Unknown]
